FAERS Safety Report 11009998 (Version 1)
Quarter: 2015Q2

REPORT INFORMATION
  Report Type: Report from Study
  Country: US (occurrence: US)
  Receive Date: 20150410
  Receipt Date: 20150410
  Transmission Date: 20150821
  Serious: Yes (Hospitalization)
  Sender: FDA-Public Use
  Company Number: US-SANOFI-AVENTIS-2013SA075940

PATIENT
  Age: 49 Year
  Sex: Female

DRUGS (2)
  1. AUBAGIO [Suspect]
     Active Substance: TERIFLUNOMIDE
     Route: 048
     Dates: start: 20130410
  2. AUBAGIO [Suspect]
     Active Substance: TERIFLUNOMIDE
     Route: 048

REACTIONS (10)
  - Paraesthesia [Recovering/Resolving]
  - Alopecia [Recovering/Resolving]
  - Hypoaesthesia [Unknown]
  - Fibromyalgia [Unknown]
  - Multiple sclerosis relapse [Recovered/Resolved]
  - Cellulitis [Unknown]
  - Carpal tunnel syndrome [Unknown]
  - Multiple sclerosis relapse [Recovered/Resolved]
  - Trigeminal neuralgia [Recovered/Resolved]
  - Dizziness [Recovered/Resolved]

NARRATIVE: CASE EVENT DATE: 2013
